FAERS Safety Report 5220813-6 (Version None)
Quarter: 2007Q1

REPORT INFORMATION
  Report Type: 
  Country: None (occurrence: None)
  Receive Date: 20070123
  Receipt Date: 20070116
  Transmission Date: 20070707
  Serious: Yes (Death)
  Sender: FDA-Public Use
  Company Number: 235161

PATIENT
  Sex: Female

DRUGS (1)
  1. ACTIVASE [Suspect]
     Indication: ISCHAEMIC STROKE
     Dosage: 20 MG, SINGLE, INTRA-ARTERIAL
     Route: 013
     Dates: start: 20070105, end: 20070105

REACTIONS (1)
  - DEATH [None]
